FAERS Safety Report 18058714 (Version 1)
Quarter: 2020Q3

REPORT INFORMATION
  Report Type: Spontaneous
  Country: US (occurrence: US)
  Receive Date: 20200722
  Receipt Date: 20200722
  Transmission Date: 20201103
  Serious: No
  Sender: FDA-Public Use
  Company Number: None

PATIENT
  Sex: Female

DRUGS (1)
  1. KEYTRUDA [Suspect]
     Active Substance: PEMBROLIZUMAB
     Indication: UTERINE CANCER
     Route: 042
     Dates: start: 202005

REACTIONS (5)
  - Renal disorder [None]
  - Blood glucose abnormal [None]
  - Therapy interrupted [None]
  - Laboratory test abnormal [None]
  - Thyroid disorder [None]
